FAERS Safety Report 10866181 (Version 1)
Quarter: 2015Q1

REPORT INFORMATION
  Report Type: Spontaneous
  Country: US (occurrence: None)
  Receive Date: 20150219
  Receipt Date: 20150219
  Transmission Date: 20150721
  Serious: Yes (Other)
  Sender: FDA-Public Use
  Company Number: ADR-2015-00340

PATIENT
  Age: 71 Year
  Sex: Female

DRUGS (2)
  1. BUPIVACAINE [Suspect]
     Active Substance: BUPIVACAINE
     Indication: SPINAL PAIN
  2. BACLOFEN INTRATHECAL [Suspect]
     Active Substance: BACLOFEN
     Indication: SPINAL PAIN

REACTIONS (5)
  - Aptyalism [None]
  - Tooth disorder [None]
  - Hip fracture [None]
  - Drug effect decreased [None]
  - Movement disorder [None]

NARRATIVE: CASE EVENT DATE: 20150205
